FAERS Safety Report 10157539 (Version 2)
Quarter: 2014Q2

REPORT INFORMATION
  Report Type: Spontaneous
  Country: IT (occurrence: IT)
  Receive Date: 20140507
  Receipt Date: 20140617
  Transmission Date: 20141212
  Serious: Yes (Death, Other)
  Sender: FDA-Public Use
  Company Number: PHHY2014IT054702

PATIENT
  Age: 68 Year
  Sex: Male

DRUGS (3)
  1. PYRAZINAMIDE [Suspect]
     Indication: TUBERCULOSIS
  2. RIFAMPICIN [Suspect]
     Indication: TUBERCULOSIS
  3. ISONIAZID [Suspect]
     Indication: TUBERCULOSIS

REACTIONS (11)
  - Pulmonary embolism [Fatal]
  - Thrombophlebitis [Fatal]
  - Acute generalised exanthematous pustulosis [Recovering/Resolving]
  - Rash pustular [Recovering/Resolving]
  - Erythema [Recovering/Resolving]
  - Pyrexia [Recovering/Resolving]
  - Rash pruritic [Recovering/Resolving]
  - Skin lesion [Recovering/Resolving]
  - Leukocytosis [Recovering/Resolving]
  - Red blood cell sedimentation rate increased [Recovering/Resolving]
  - Skin exfoliation [Recovering/Resolving]
